FAERS Safety Report 15573444 (Version 2)
Quarter: 2019Q3

REPORT INFORMATION
  Report Type: Report from Study
  Country: None (occurrence: US)
  Receive Date: 20181101
  Receipt Date: 20190809
  Transmission Date: 20191004
  Serious: Yes (Hospitalization, Other)
  Sender: FDA-Public Use
  Company Number: US-ABBVIE-18K-163-2444857-00

PATIENT
  Sex: Female
  Weight: 76.73 kg

DRUGS (1)
  1. HUMIRA [Suspect]
     Active Substance: ADALIMUMAB
     Indication: RHEUMATOID ARTHRITIS
     Route: 058
     Dates: start: 2010, end: 201807

REACTIONS (9)
  - Neuralgia [Recovering/Resolving]
  - Sepsis [Unknown]
  - Peripheral swelling [Not Recovered/Not Resolved]
  - Pain [Recovering/Resolving]
  - Rash [Recovered/Resolved]
  - Haemoglobin decreased [Unknown]
  - Aortic valve prolapse [Not Recovered/Not Resolved]
  - Osteomyelitis [Recovering/Resolving]
  - Trigeminal neuralgia [Recovering/Resolving]

NARRATIVE: CASE EVENT DATE: 2013
